FAERS Safety Report 19376482 (Version 2)
Quarter: 2021Q3

REPORT INFORMATION
  Report Type: Spontaneous
  Country: US (occurrence: US)
  Receive Date: 20210605
  Receipt Date: 20210716
  Transmission Date: 20211014
  Serious: No
  Sender: FDA-Public Use
  Company Number: US-ASTRAZENECA-2021A443969

PATIENT
  Sex: Female

DRUGS (3)
  1. SYMBICORT [Suspect]
     Active Substance: BUDESONIDE\FORMOTEROL FUMARATE DIHYDRATE
     Indication: CHRONIC OBSTRUCTIVE PULMONARY DISEASE
     Dosage: 160?4.5 MCG, 2 PUFFS
     Route: 055
  2. ALBUTEROL. [Concomitant]
     Active Substance: ALBUTEROL
  3. SYMBICORT [Suspect]
     Active Substance: BUDESONIDE\FORMOTEROL FUMARATE DIHYDRATE
     Indication: BRONCHITIS
     Dosage: 160?4.5 MCG, 2 PUFFS
     Route: 055

REACTIONS (9)
  - Hypersensitivity [Unknown]
  - Device delivery system issue [Unknown]
  - Dyspnoea [Unknown]
  - Nasopharyngitis [Unknown]
  - Chest pain [Unknown]
  - Pulmonary pain [Unknown]
  - Intentional device misuse [Unknown]
  - Incorrect dose administered by device [Unknown]
  - Cough [Unknown]
